FAERS Safety Report 7626599-X (Version None)
Quarter: 2011Q3

REPORT INFORMATION
  Report Type: 
  Country: None (occurrence: None)
  Receive Date: 20110721
  Receipt Date: 20110715
  Transmission Date: 20111222
  Serious: Yes (Hospitalization)
  Sender: FDA-Public Use
  Company Number: ES-GLAXOSMITHKLINE-B0734134A

PATIENT
  Age: 35 Year
  Sex: Female

DRUGS (1)
  1. LAMICTAL [Suspect]
     Indication: MIGRAINE
     Dosage: 25MG VARIABLE DOSE
     Route: 048
     Dates: start: 20110325, end: 20110425

REACTIONS (2)
  - RESPIRATORY FAILURE [None]
  - STEVENS-JOHNSON SYNDROME [None]
